FAERS Safety Report 24935764 (Version 1)
Quarter: 2025Q1

REPORT INFORMATION
  Report Type: Spontaneous
  Country: US (occurrence: US)
  Receive Date: 20250206
  Receipt Date: 20250206
  Transmission Date: 20250408
  Serious: Yes (Hospitalization, Other)
  Sender: EXELIXIS
  Company Number: US-EXELIXIS-CABO-24080869

PATIENT
  Age: 42 Year
  Sex: Male

DRUGS (2)
  1. CABOMETYX [Suspect]
     Active Substance: CABOZANTINIB S-MALATE
     Indication: Metastatic renal cell carcinoma
     Dosage: 40 MG, QD
  2. CABOMETYX [Suspect]
     Active Substance: CABOZANTINIB S-MALATE

REACTIONS (7)
  - Hypothyroidism [Unknown]
  - Metastases to lymph nodes [Unknown]
  - Fatigue [Unknown]
  - Dysgeusia [Unknown]
  - Stomatitis [Unknown]
  - Nausea [Unknown]
  - Decreased appetite [Unknown]
